FAERS Safety Report 24302329 (Version 1)
Quarter: 2024Q3

REPORT INFORMATION
  Report Type: Spontaneous
  Country: US (occurrence: US)
  Receive Date: 20240910
  Receipt Date: 20240910
  Transmission Date: 20241017
  Serious: No
  Sender: ASTELLAS
  Company Number: US-ASTELLAS-2024-AER-003136

PATIENT
  Age: 54 Year
  Sex: Female

DRUGS (1)
  1. VEOZAH [Suspect]
     Active Substance: FEZOLINETANT
     Indication: Product used for unknown indication
     Dosage: 45 MG UNKNOWN FREQUENCY
     Route: 065
     Dates: start: 20240520, end: 20240716

REACTIONS (2)
  - Anal rash [Recovering/Resolving]
  - Rash [Recovering/Resolving]
